FAERS Safety Report 14931711 (Version 5)
Quarter: 2018Q3

REPORT INFORMATION
  Report Type: Report from Study
  Country: HU (occurrence: HU)
  Receive Date: 20180524
  Receipt Date: 20180903
  Transmission Date: 20181010
  Serious: Yes (Hospitalization)
  Sender: FDA-Public Use
  Company Number: HU-ROCHE-2127118

PATIENT
  Age: 57 Year
  Sex: Male
  Weight: 94 kg

DRUGS (17)
  1. VITAMIN C [Concomitant]
     Active Substance: ASCORBIC ACID
     Indication: PROPHYLAXIS
     Route: 065
     Dates: start: 200903
  2. FLAVOGENIN PRO [Concomitant]
     Indication: PROPHYLAXIS
     Route: 065
     Dates: start: 201710
  3. XETER [Concomitant]
     Active Substance: ROSUVASTATIN CALCIUM
     Indication: PROPHYLAXIS
     Route: 065
     Dates: start: 200903
  4. VITAMIN D3 FORTE [Concomitant]
     Indication: PROPHYLAXIS
     Route: 065
     Dates: start: 201601
  5. RED BLOOD CELLS [Concomitant]
     Active Substance: HUMAN RED BLOOD CELL
     Indication: ANAEMIA
     Dosage: 2 UNITS
     Route: 065
     Dates: start: 20180518, end: 20180518
  6. PANTOPRAZOL [Concomitant]
     Active Substance: PANTOPRAZOLE SODIUM
     Indication: PROPHYLAXIS
     Route: 065
     Dates: start: 2010
  7. SELENIUM [Concomitant]
     Active Substance: SELENIUM
     Indication: PROPHYLAXIS
     Route: 065
     Dates: start: 2016
  8. VOLTAREN [Concomitant]
     Active Substance: DICLOFENAC SODIUM
     Indication: CANCER PAIN
     Route: 065
     Dates: start: 20180427
  9. ATEZOLIZUMAB. [Suspect]
     Active Substance: ATEZOLIZUMAB
     Indication: SQUAMOUS CELL CARCINOMA
     Dosage: MOST RECENT DOSE PRIOR TO SAE ON 03/MAY/2018 ?ON DAYS 1 AND 15 OF EACH 28?DAY CYCLE
     Route: 042
     Dates: start: 20180419
  10. COBIMETINIB. [Suspect]
     Active Substance: COBIMETINIB
     Indication: SQUAMOUS CELL CARCINOMA
     Dosage: MOST RECENT DOSE PRIOR TO SAE (40 MG) ON 10/MAY/2018? ON DAYS 1?21 OF EACH 28?DAY CYCLE.
     Route: 048
     Dates: start: 20180419
  11. MAGNESIUM CITRAT [Concomitant]
     Indication: PROPHYLAXIS
     Route: 065
     Dates: start: 201711
  12. SKUDEXA [Concomitant]
     Active Substance: DEXKETOPROFEN\TRAMADOL
     Indication: CANCER PAIN
     Route: 065
     Dates: start: 20180314
  13. CARVOL [Concomitant]
     Indication: PROPHYLAXIS
     Route: 065
     Dates: start: 201503
  14. ESCITALOPRAM [Concomitant]
     Active Substance: ESCITALOPRAM OXALATE
     Indication: PROPHYLAXIS
     Route: 065
     Dates: start: 201603
  15. ASPIRIN PROTECT [Concomitant]
     Active Substance: ASPIRIN
     Indication: PROPHYLAXIS
     Route: 065
     Dates: start: 200903
  16. STILNOX [Concomitant]
     Active Substance: ZOLPIDEM TARTRATE
     Indication: INSOMNIA
     Route: 065
     Dates: start: 20160303
  17. INDOMETACINUM [Concomitant]
     Active Substance: INDOMETHACIN
     Indication: CANCER PAIN
     Route: 065
     Dates: start: 20180427

REACTIONS (1)
  - Pericarditis [Not Recovered/Not Resolved]

NARRATIVE: CASE EVENT DATE: 20180517
